FAERS Safety Report 5256025-X (Version None)
Quarter: 2007Q1

REPORT INFORMATION
  Report Type: 
  Country: None (occurrence: None)
  Receive Date: 20070306
  Receipt Date: 20070223
  Transmission Date: 20070707
  Serious: Yes (Other)
  Sender: FDA-Public Use
  Company Number: PHEH2007US02383

PATIENT
  Age: 64 Year
  Sex: Female

DRUGS (2)
  1. ZOMETA [Suspect]
     Route: 042
  2. PAMIDRONATE DISODIUM [Suspect]
     Route: 042

REACTIONS (2)
  - HYPERCALCAEMIA [None]
  - OSTEONECROSIS [None]
